FAERS Safety Report 17897942 (Version 1)
Quarter: 2020Q2

REPORT INFORMATION
  Report Type: Spontaneous
  Country: US (occurrence: US)
  Receive Date: 20200616
  Receipt Date: 20200616
  Transmission Date: 20200714
  Serious: No
  Sender: FDA-Public Use
  Company Number: US-AMGEN-USASP2020095281

PATIENT
  Age: 53 Year
  Sex: Female
  Weight: 65.3 kg

DRUGS (2)
  1. KYPROLIS [Suspect]
     Active Substance: CARFILZOMIB
     Indication: PLASMA CELL MYELOMA
     Dosage: 114 MILLIGRAM, Q3WK
     Route: 042
  2. KYPROLIS [Suspect]
     Active Substance: CARFILZOMIB
     Dosage: 114 MILLIGRAM, Q3WK
     Route: 042
     Dates: start: 20200611

REACTIONS (4)
  - Nausea [Unknown]
  - Vertigo [Unknown]
  - Malaise [Unknown]
  - Dyspnoea [Unknown]

NARRATIVE: CASE EVENT DATE: 20200604
